FAERS Safety Report 9765056 (Version 1)
Quarter: 2013Q4

REPORT INFORMATION
  Report Type: Spontaneous
  Country: US (occurrence: None)
  Receive Date: 20131213
  Receipt Date: 20131213
  Transmission Date: 20140711
  Serious: Yes (Other)
  Sender: FDA-Public Use
  Company Number: 2013SA032218

PATIENT
  Age: 75 Year
  Sex: Female

DRUGS (1)
  1. ICY HOT POWER GEL [Suspect]
     Indication: NECK PAIN
     Dosage: TOPICAL ; AT BEDTIME
     Route: 061

REACTIONS (8)
  - Pain [None]
  - Burning sensation [None]
  - Tenderness [None]
  - Application site vesicles [None]
  - Application site erythema [None]
  - Scab [None]
  - Neck pain [None]
  - Drug ineffective [None]
